FAERS Safety Report 7828908-5 (Version None)
Quarter: 2011Q4

REPORT INFORMATION
  Report Type: 
  Country: None (occurrence: None)
  Receive Date: 20111020
  Receipt Date: 20111010
  Transmission Date: 20120403
  Serious: Yes (Hospitalization)
  Sender: FDA-Public Use
  Company Number: AU-BAYER-2011-096389

PATIENT
  Sex: Female

DRUGS (1)
  1. MIRENA [Suspect]
     Indication: CONTRACEPTION
     Dosage: UNK
     Route: 015
     Dates: start: 20100101, end: 20111010

REACTIONS (4)
  - UTERINE PERFORATION [None]
  - PROCEDURAL PAIN [None]
  - SYNCOPE [None]
  - PROCEDURAL NAUSEA [None]
